FAERS Safety Report 11729310 (Version 1)
Quarter: 2015Q4

REPORT INFORMATION
  Report Type: Spontaneous
  Country: None (occurrence: GB)
  Receive Date: 20151112
  Receipt Date: 20151112
  Transmission Date: 20160304
  Serious: Yes (Hospitalization)
  Sender: FDA-Public Use
  Company Number: GB-MEDAC PHARMA, INC.-1044115

PATIENT
  Sex: Male

DRUGS (2)
  1. HUMIRA [Suspect]
     Active Substance: ADALIMUMAB
  2. METOJECT PEN [Suspect]
     Active Substance: METHOTREXATE

REACTIONS (3)
  - Pain in extremity [Unknown]
  - Swelling [Unknown]
  - Musculoskeletal pain [Unknown]
